FAERS Safety Report 10559503 (Version 2)
Quarter: 2014Q4

REPORT INFORMATION
  Report Type: Spontaneous
  Country: TR (occurrence: TR)
  Receive Date: 20141103
  Receipt Date: 20141103
  Transmission Date: 20150529
  Serious: Yes (Hospitalization, Other)
  Sender: FDA-Public Use
  Company Number: PHHY2014TR131544

PATIENT
  Age: 54 Year
  Sex: Female

DRUGS (14)
  1. CO-DIOVAN [Suspect]
     Active Substance: HYDROCHLOROTHIAZIDE\VALSARTAN
     Indication: BLOOD PRESSURE INCREASED
     Dosage: 1 DF, DAILY (160 MG NALSARTAN AND 12.5 MG HYDROCHLOROTHIAZIDE)
     Route: 065
     Dates: start: 20140712
  2. CO-DIOVAN [Suspect]
     Active Substance: HYDROCHLOROTHIAZIDE\VALSARTAN
     Dosage: 1 DF, BID (160 MG NALSARTAN AND 12.5 MG HYDROCHLOROTHIAZIDE)
     Route: 065
     Dates: start: 20140825, end: 20140831
  3. CO-DIOVAN [Suspect]
     Active Substance: HYDROCHLOROTHIAZIDE\VALSARTAN
     Dosage: 1 DF, BID (160 MG NALSARTAN AND 12.5 MG HYDROCHLOROTHIAZIDE)
     Route: 065
     Dates: start: 20140721, end: 20140730
  4. INLYTA [Suspect]
     Active Substance: AXITINIB
     Indication: METASTATIC RENAL CELL CARCINOMA
     Dosage: 5 MG, BID
     Route: 065
     Dates: start: 20140712, end: 20140730
  5. INLYTA [Suspect]
     Active Substance: AXITINIB
     Dosage: 5 MG, BID
     Route: 065
     Dates: start: 20140825
  6. EUTHYROX [Concomitant]
     Active Substance: LEVOTHYROXINE SODIUM
     Indication: PRODUCT USED FOR UNKNOWN INDICATION
     Dosage: 50 MG, ONCE DAILY AT MORNINGS EMPTY STOMACH,
     Route: 065
  7. DILTIAZEM [Concomitant]
     Active Substance: DILTIAZEM
     Indication: PRODUCT USED FOR UNKNOWN INDICATION
     Dosage: 90 MG, ONCE DAILY AT MORNINGS WITH FULL STOMACH
     Route: 065
  8. INLYTA [Suspect]
     Active Substance: AXITINIB
     Dosage: (DOSE REDUCED)
     Route: 065
     Dates: start: 20140917
  9. NORODOL [Concomitant]
     Dosage: UNK
  10. CO-DIOVAN [Suspect]
     Active Substance: HYDROCHLOROTHIAZIDE\VALSARTAN
     Dosage: 1 DF, QD IN MORNING
     Route: 065
     Dates: start: 20140917, end: 20140930
  11. REMERON [Suspect]
     Active Substance: MIRTAZAPINE
     Indication: ALTERED STATE OF CONSCIOUSNESS
  12. LANSOR [Concomitant]
     Active Substance: LANSOPRAZOLE
     Indication: PRODUCT USED FOR UNKNOWN INDICATION
     Dosage: 30 MG, DAILY AR MORNING WITH EMPTY STOMACH,
     Route: 065
  13. NORODOL [Concomitant]
     Indication: PRODUCT USED FOR UNKNOWN INDICATION
     Dosage: 7 DRP, BID
     Route: 065
  14. REMERON [Suspect]
     Active Substance: MIRTAZAPINE
     Indication: INSOMNIA
     Dosage: 30 MG, QD
     Route: 065
     Dates: start: 201306, end: 20140808

REACTIONS (5)
  - Blood pressure increased [Unknown]
  - Trismus [Unknown]
  - Strabismus [Unknown]
  - Contusion [Unknown]
  - Blood sodium decreased [Not Recovered/Not Resolved]

NARRATIVE: CASE EVENT DATE: 20140721
